FAERS Safety Report 21945458 (Version 1)
Quarter: 2023Q1

REPORT INFORMATION
  Report Type: Spontaneous
  Country: CN (occurrence: CN)
  Receive Date: 20230202
  Receipt Date: 20230202
  Transmission Date: 20230418
  Serious: Yes (Hospitalization, Other)
  Sender: FDA-Public Use
  Company Number: None

PATIENT
  Age: 3 Year
  Sex: Male
  Weight: 15.5 kg

DRUGS (7)
  1. CYCLOPHOSPHAMIDE [Suspect]
     Active Substance: CYCLOPHOSPHAMIDE
     Indication: Acute lymphocytic leukaemia
     Dosage: 660 MG, QD, (DILUTED WITH 250 ML OF 0.9% SODIUM CHLORIDE), ROUTE: INTRA-PUMP INJECTION
     Route: 050
     Dates: start: 20230101, end: 20230101
  2. SODIUM CHLORIDE [Suspect]
     Active Substance: SODIUM CHLORIDE
     Indication: Medication dilution
     Dosage: 250 ML, QD, (USED TO DILUTE 660 MG OF CYCLOPHOSPHAMIDE), ROUTE: INTRA-PUMP INJECTION, CONCENTRATION:
     Route: 050
     Dates: start: 20230101, end: 20230101
  3. SODIUM CHLORIDE [Suspect]
     Active Substance: SODIUM CHLORIDE
     Dosage: 90 MG, QD, (USED TO DILUTE 35 MG OF CYTARABINE HYDROCHLORIDE AND METHOTREXATE 10 MG)
     Route: 037
     Dates: start: 20230101, end: 20230101
  4. SODIUM CHLORIDE [Suspect]
     Active Substance: SODIUM CHLORIDE
     Dosage: 100 ML, Q2D, (USED TO DILUTE 33 MG OF CYTARABINE HYDROCHLORIDE), ROUTE: INTRA-PUMP INJECTION
     Route: 050
     Dates: start: 20230101, end: 20230107
  5. METHOTREXATE [Suspect]
     Active Substance: METHOTREXATE
     Indication: Acute lymphocytic leukaemia
     Dosage: 10 MG, QD, (DILUTED WITH 90 MG OF SODIUM CHLORIDE AND CYTARABINE HYDROCHLORIDE 35 MG)
     Route: 037
     Dates: start: 20230101, end: 20230101
  6. CYTARABINE HYDROCHLORIDE [Suspect]
     Active Substance: CYTARABINE HYDROCHLORIDE
     Indication: Acute lymphocytic leukaemia
     Dosage: 33 MG, Q2D, (DILUTED WITH 100 ML OF 0.9% SODIUM CHLORIDE), ROUTE: INTRA-PUMP INJECTION
     Route: 050
     Dates: start: 20230101, end: 20230107
  7. CYTARABINE HYDROCHLORIDE [Suspect]
     Active Substance: CYTARABINE HYDROCHLORIDE
     Dosage: 35 MG, QD, (DILUTED WITH 90 MG OF SODIUM CHLORIDE AND METHOTREXATE 10 MG)
     Route: 037
     Dates: start: 20230101, end: 20230101

REACTIONS (1)
  - Myelosuppression [Unknown]

NARRATIVE: CASE EVENT DATE: 20230104
